FAERS Safety Report 5090631-0 (Version None)
Quarter: 2006Q3

REPORT INFORMATION
  Report Type: 
  Country: None (occurrence: None)
  Receive Date: 20060823
  Receipt Date: 20060816
  Transmission Date: 20061208
  Serious: Yes (Hospitalization, Other)
  Sender: FDA-Public Use
  Company Number: HQWYE098302MAR06

PATIENT
  Sex: Male

DRUGS (2)
  1. RAPAMUNE [Suspect]
  2. BIAXIN [Suspect]

REACTIONS (3)
  - HALLUCINATION [None]
  - IMMUNOSUPPRESSANT DRUG LEVEL INCREASED [None]
  - SEDATION [None]
